FAERS Safety Report 12084300 (Version 1)
Quarter: 2016Q1

REPORT INFORMATION
  Report Type: Spontaneous
  Country: US (occurrence: US)
  Receive Date: 20160217
  Receipt Date: 20160217
  Transmission Date: 20160526
  Serious: Yes (Other)
  Sender: FDA-Public Use
  Company Number: US-OTSUKA-US-2015-11407

PATIENT

DRUGS (8)
  1. GRANULOCYTE COLONY STIMULATING FACTOR [Concomitant]
     Active Substance: GRANULOCYTE COLONY-STIMULATING FACTOR NOS
     Indication: PRODUCT USED FOR UNKNOWN INDICATION
     Dosage: 5 MG/KG, QD
     Route: 058
  2. ETOPOSIDE. [Suspect]
     Active Substance: ETOPOSIDE
     Indication: CHEMOTHERAPY
     Dosage: 40 MG/KG, UNK
     Route: 042
  3. ETOPOSIDE. [Suspect]
     Active Substance: ETOPOSIDE
     Indication: STEM CELL TRANSPLANT
     Dosage: 60 MG/KG, GIVEN OVER 4 HOURS ON DAY -3 BEFORE AUTOLOGOUS HSCT
     Route: 042
  4. CYTARABINE. [Suspect]
     Active Substance: CYTARABINE
     Indication: CHEMOTHERAPY
     Dosage: 2000 MG/M2, BID
     Route: 042
  5. ETOPOSIDE. [Suspect]
     Active Substance: ETOPOSIDE
     Dosage: 60 MG/KG, LEAST 24 HOURS AFTER THE LAST BUSULFAN DOSE
     Route: 042
  6. PALIFERMIN [Concomitant]
     Active Substance: PALIFERMIN
     Indication: PROPHYLAXIS
     Dosage: 60 MG/KG, QD
     Route: 042
  7. BUSULFEX [Suspect]
     Active Substance: BUSULFAN
     Indication: STEM CELL TRANSPLANT
     Dosage: 14.4 MG/KG, UNK
     Route: 042
  8. GRANULOCYTE COLONY STIMULATING FACTOR [Concomitant]
     Active Substance: GRANULOCYTE COLONY-STIMULATING FACTOR NOS
     Dosage: 10 MG/KG, QD
     Route: 058

REACTIONS (4)
  - Drug administration error [Unknown]
  - Febrile neutropenia [Unknown]
  - Urinary tract infection enterococcal [Unknown]
  - Off label use [Unknown]
